FAERS Safety Report 13296087 (Version 2)
Quarter: 2017Q1

REPORT INFORMATION
  Report Type: Spontaneous
  Country: US (occurrence: US)
  Receive Date: 20170304
  Receipt Date: 20170323
  Transmission Date: 20170428
  Serious: No
  Sender: FDA-Public Use
  Company Number: US-TEVA-736242USA

PATIENT

DRUGS (1)
  1. PROVIGIL [Suspect]
     Active Substance: MODAFINIL
     Indication: NARCOLEPSY

REACTIONS (2)
  - Drug effect incomplete [Unknown]
  - Product substitution issue [Unknown]

NARRATIVE: CASE EVENT DATE: 201612
